FAERS Safety Report 17884338 (Version 6)
Quarter: 2021Q1

REPORT INFORMATION
  Report Type: Report from Study
  Country: BR (occurrence: BR)
  Receive Date: 20200611
  Receipt Date: 20210305
  Transmission Date: 20210419
  Serious: Yes (Other)
  Sender: FDA-Public Use
  Company Number: NVSC2020BR162724

PATIENT
  Sex: Male
  Weight: 93 kg

DRUGS (15)
  1. COSENTYX [Suspect]
     Active Substance: SECUKINUMAB
     Dosage: 2 DF (2 PENS), QMO
     Route: 065
     Dates: start: 20181101
  2. COSENTYX [Suspect]
     Active Substance: SECUKINUMAB
     Dosage: 300 MG, QMO , STARTED 2 YEARS AGO
     Route: 058
  3. GLIBENCLAMIDE [Concomitant]
     Active Substance: GLYBURIDE
     Indication: DIABETES MELLITUS
     Dosage: 2 DF, QD (5 MG) 3 YEARS AGO
     Route: 048
  4. COSENTYX [Suspect]
     Active Substance: SECUKINUMAB
     Dosage: 2 DF, 150 MG (2 PENS)
     Route: 058
     Dates: start: 20210102
  5. LOSARTAN. [Concomitant]
     Active Substance: LOSARTAN
     Indication: HYPERTENSION
     Dosage: 2 DF, QD (50 MG), 3 YEARS AGO (1 IN THE MORNING AND 1 IN THE AFTERNOON)
     Route: 048
  6. GLIFAGE [Concomitant]
     Active Substance: METFORMIN HYDROCHLORIDE
     Indication: DIABETES MELLITUS
     Dosage: 2 DF, QD (500 MG) 3 YEARS AGO (AFTER DINNER)
     Route: 048
  7. COSENTYX [Suspect]
     Active Substance: SECUKINUMAB
     Dosage: 300 MG, UNKNOWN
     Route: 065
     Dates: start: 20191101
  8. COSENTYX [Suspect]
     Active Substance: SECUKINUMAB
     Dosage: 2 DF, 150 MG (2 PENS)
     Route: 058
     Dates: start: 20210202
  9. COSENTYX [Suspect]
     Active Substance: SECUKINUMAB
     Indication: PSORIATIC ARTHROPATHY
     Dosage: 150 MG, QMO (2 AMPOULES)
     Route: 058
     Dates: start: 2018
  10. GLIBENCLAMIDE [Concomitant]
     Active Substance: GLYBURIDE
     Dosage: 5 MG, BID, STARTED AROUND 3 YEARS AGO
     Route: 048
  11. GLIFAGE [Concomitant]
     Active Substance: METFORMIN HYDROCHLORIDE
     Dosage: 500 MG, BID, STARTED AROUND 3 YEARS AGO
     Route: 048
  12. ATENOLOL. [Concomitant]
     Active Substance: ATENOLOL
     Indication: HYPERTENSION
     Dosage: 2 DF, QD (3 YEARS AGO)
     Route: 048
  13. GLIBENCLAMIDE [Concomitant]
     Active Substance: GLYBURIDE
     Dosage: 1 DF (50 MG), TID (6 MONTHS AGO)
     Route: 048
  14. LOSARTAN. [Concomitant]
     Active Substance: LOSARTAN
     Dosage: 50 MG, BID, STARTED 3 YEARS AGO
     Route: 048
  15. ATENOLOL. [Concomitant]
     Active Substance: ATENOLOL
     Dosage: 25 MG, BID, STARTED AROUND 3 YEARS AGO
     Route: 048

REACTIONS (19)
  - Immunodeficiency [Not Recovered/Not Resolved]
  - Skin lesion [Recovering/Resolving]
  - Movement disorder [Not Recovered/Not Resolved]
  - Infection [Not Recovered/Not Resolved]
  - Oropharyngeal discomfort [Not Recovered/Not Resolved]
  - Arthropathy [Unknown]
  - Product availability issue [Unknown]
  - Rash [Not Recovered/Not Resolved]
  - Psoriatic arthropathy [Not Recovered/Not Resolved]
  - Limb injury [Recovering/Resolving]
  - Injury [Recovering/Resolving]
  - Aphthous ulcer [Not Recovered/Not Resolved]
  - Feeding disorder [Not Recovered/Not Resolved]
  - Product dose omission issue [Unknown]
  - Pharyngitis [Not Recovered/Not Resolved]
  - Joint injury [Not Recovered/Not Resolved]
  - Back pain [Not Recovered/Not Resolved]
  - Spinal pain [Not Recovered/Not Resolved]
  - Spinal disorder [Unknown]

NARRATIVE: CASE EVENT DATE: 2019
